FAERS Safety Report 7207460-1 (Version None)
Quarter: 2011Q1

REPORT INFORMATION
  Report Type: 
  Country: None (occurrence: None)
  Receive Date: 20110103
  Receipt Date: 20101222
  Transmission Date: 20110831
  Serious: Yes (Hospitalization)
  Sender: FDA-Public Use
  Company Number: PHHO2010US17364

PATIENT
  Sex: Male
  Weight: 151.93 kg

DRUGS (7)
  1. LOTENSIN [Concomitant]
     Indication: HYPERTENSION
  2. AVAPRO [Concomitant]
     Indication: HYPERTENSION
  3. COLCHICINE [Suspect]
  4. ACZ885 [Suspect]
     Indication: GOUT
     Dosage: UNK
     Route: 058
     Dates: start: 20100330
  5. HYDROCHLOROTHIAZDE TAB [Concomitant]
     Indication: HYPERTENSION
  6. GLUCOTROL [Concomitant]
     Indication: DIABETES MELLITUS
  7. METFORMIN HCL [Concomitant]
     Indication: DIABETES MELLITUS

REACTIONS (4)
  - DIVERTICULUM [None]
  - GASTROINTESTINAL HAEMORRHAGE [None]
  - ANAEMIA [None]
  - COLONIC POLYP [None]
